FAERS Safety Report 8935670 (Version 1)
Quarter: 2012Q4

REPORT INFORMATION
  Report Type: 
  Country: US (occurrence: US)
  Receive Date: 20121130
  Receipt Date: 20121130
  Transmission Date: 20130627
  Serious: Yes (Hospitalization, Other)
  Sender: FDA-Public Use
  Company Number: US-PFIZER INC-2012300042

PATIENT
  Age: 65 Year
  Sex: Female
  Weight: 99 kg

DRUGS (13)
  1. CHANTIX [Suspect]
     Indication: SMOKING CESSATION THERAPY
     Dosage: 1 mg, 1x/day
     Route: 048
     Dates: start: 2012
  2. CHANTIX [Suspect]
     Dosage: 1 mg, UNK
     Route: 048
  3. GABAPENTIN [Suspect]
     Indication: NEUROPATHY
     Dosage: 300 mg, 2x/day
     Route: 048
     Dates: start: 2012
  4. HYDROCHLOROTHIAZIDE\LISINOPRIL [Concomitant]
     Dosage: 25/20 mg, 2x/day
  5. CITALOPRAM [Concomitant]
     Dosage: 20 mg, 2x/day
  6. OMEPRAZOLE [Concomitant]
     Dosage: 20 mg, UNK
  7. LEVOTHYROXINE [Concomitant]
     Dosage: 175 ug, UNK
  8. METFORMIN ER [Concomitant]
     Dosage: 500 mg, 1x/day
  9. LOVASTATIN [Concomitant]
     Indication: HIGH CHOLESTEROL
     Dosage: 20 mg, UNK
  10. FLONASE [Concomitant]
     Indication: NASAL STUFFINESS
     Dosage: UNK, 1x/day
     Route: 045
  11. XANAX [Concomitant]
     Indication: ANXIETY
     Dosage: 0.5 mg, as needed
  12. COMBIVENT [Concomitant]
     Dosage: UNK, 1x/day
  13. SINGULAIR [Concomitant]
     Dosage: 10 mg, 1x/day

REACTIONS (5)
  - Pneumonia [Unknown]
  - Nasopharyngitis [Unknown]
  - Neuropathy peripheral [Unknown]
  - Insomnia [Unknown]
  - Incorrect dose administered [Unknown]
